FAERS Safety Report 9651945 (Version 1)
Quarter: 2013Q4

REPORT INFORMATION
  Report Type: Spontaneous
  Country: US (occurrence: None)
  Receive Date: 20131028
  Receipt Date: 20131028
  Transmission Date: 20140711
  Serious: No
  Sender: FDA-Public Use
  Company Number: None

PATIENT
  Sex: Female
  Weight: 68.2 kg

DRUGS (1)
  1. CHANTIX [Suspect]
     Indication: EX-TOBACCO USER
     Dosage: 1 CAPSULE, TWICE DAILY, THROUGH MOUTH?AUGUST 15 - OCTOBER 16
     Route: 048

REACTIONS (4)
  - Chest pain [None]
  - Dysphagia [None]
  - Panic attack [None]
  - Foreign body [None]
